FAERS Safety Report 8141927-7 (Version None)
Quarter: 2012Q1

REPORT INFORMATION
  Report Type: 
  Country: None (occurrence: None)
  Receive Date: 20120216
  Receipt Date: 20120210
  Transmission Date: 20120608
  Serious: Yes (Other)
  Sender: FDA-Public Use
  Company Number: US-GLAXOSMITHKLINE-A0965774A

PATIENT
  Age: 62 Year
  Sex: Female

DRUGS (2)
  1. TYKERB [Suspect]
     Indication: BREAST CANCER
     Dosage: 1250MG PER DAY
     Route: 048
  2. PROTON PUMP INHIBITORS [Concomitant]

REACTIONS (6)
  - DRY MOUTH [None]
  - SEPSIS [None]
  - STOMATITIS [None]
  - CLOSTRIDIUM DIFFICILE COLITIS [None]
  - KIDNEY INFECTION [None]
  - DYSGEUSIA [None]
